FAERS Safety Report 10912986 (Version 4)
Quarter: 2015Q2

REPORT INFORMATION
  Report Type: Spontaneous
  Country: JP (occurrence: JP)
  Receive Date: 20150313
  Receipt Date: 20150429
  Transmission Date: 20150821
  Serious: Yes (Other)
  Sender: FDA-Public Use
  Company Number: JP-PFIZER INC-2015085021

PATIENT
  Age: 64 Year
  Sex: Male

DRUGS (2)
  1. PAZOPANIB [Suspect]
     Active Substance: PAZOPANIB
     Dosage: UNK
  2. LYRICA [Suspect]
     Active Substance: PREGABALIN
     Dosage: 100 MG, DAILY
     Route: 048
     Dates: start: 20150213

REACTIONS (5)
  - Lipase increased [Recovering/Resolving]
  - Amylase increased [Recovering/Resolving]
  - Nausea [Recovering/Resolving]
  - Blood sodium decreased [Recovered/Resolved]
  - Pancreatitis [Recovering/Resolving]
